FAERS Safety Report 5357315-2 (Version None)
Quarter: 2007Q2

REPORT INFORMATION
  Report Type: 
  Country: None (occurrence: None)
  Receive Date: 20070612
  Receipt Date: 20070612
  Transmission Date: 20071010
  Serious: Yes (Death)
  Sender: FDA-Public Use
  Company Number: None

PATIENT
  Age: 66 Year
  Sex: Female
  Weight: 55.7924 kg

DRUGS (2)
  1. AVANDIA [Suspect]
     Indication: DIABETES MELLITUS
     Dosage: 4 MG BID INJ
     Dates: start: 20030715, end: 20061015
  2. AVANDIA [Suspect]
     Dosage: 4 MG QD INJ
     Dates: start: 20061016, end: 20070430

REACTIONS (2)
  - CARDIAC FAILURE CONGESTIVE [None]
  - CONTRAINDICATION TO MEDICAL TREATMENT [None]
